FAERS Safety Report 21823809 (Version 1)
Quarter: 2023Q1

REPORT INFORMATION
  Report Type: Spontaneous
  Country: US (occurrence: None)
  Receive Date: 20230104
  Receipt Date: 20230104
  Transmission Date: 20230417
  Serious: Yes (Other)
  Sender: FDA-Public Use
  Company Number: None

PATIENT
  Age: 34 Year
  Sex: Female
  Weight: 63 kg

DRUGS (3)
  1. QELBREE [Suspect]
     Active Substance: VILOXAZINE HYDROCHLORIDE
     Indication: Attention deficit hyperactivity disorder
     Dosage: FREQUENCY : DAILY;?
     Route: 048
     Dates: start: 20221124, end: 20221217
  2. propanolol [Concomitant]
  3. dextroamphetamine (5mg) [Concomitant]

REACTIONS (9)
  - Product dose omission in error [None]
  - Migraine [None]
  - Headache [None]
  - Retching [None]
  - Vomiting [None]
  - Withdrawal syndrome [None]
  - Nausea [None]
  - Product availability issue [None]
  - Insurance issue [None]

NARRATIVE: CASE EVENT DATE: 20221219
